FAERS Safety Report 18850680 (Version 2)
Quarter: 2021Q1

REPORT INFORMATION
  Report Type: Report from Study
  Country: US (occurrence: US)
  Receive Date: 20210204
  Receipt Date: 20210323
  Transmission Date: 20210420
  Serious: Yes (Death, Hospitalization)
  Sender: FDA-Public Use
  Company Number: US-SEATTLE GENETICS-2021SGN00389

PATIENT
  Sex: Female

DRUGS (1)
  1. TUCATINIB [Suspect]
     Active Substance: TUCATINIB
     Indication: BREAST CANCER FEMALE
     Dosage: 2 DF (150 MG TABS), BID
     Route: 048

REACTIONS (4)
  - Death [Fatal]
  - Urinary tract stoma complication [Unknown]
  - Inappropriate schedule of product administration [Unknown]
  - Infection [Unknown]
